FAERS Safety Report 14913859 (Version 3)
Quarter: 2018Q2

REPORT INFORMATION
  Report Type: Spontaneous
  Country: US (occurrence: US)
  Receive Date: 20180518
  Receipt Date: 20180614
  Transmission Date: 20180711
  Serious: Yes (Other)
  Sender: FDA-Public Use
  Company Number: US-SAOL THERAPEUTICS-0701091646

PATIENT
  Age: 30 Year
  Sex: Male

DRUGS (6)
  1. LIORESAL [Suspect]
     Active Substance: BACLOFEN
     Dosage: 580-585 MCG/DAY
     Route: 037
  2. LIORESAL [Suspect]
     Active Substance: BACLOFEN
     Dosage: 449 MCG/DAY
     Route: 037
     Dates: start: 20150930
  3. BACLOFEN. [Suspect]
     Active Substance: BACLOFEN
     Indication: MUSCLE SPASTICITY
     Dosage: 830 ?G, \DAY
     Route: 037
     Dates: end: 20180326
  4. BACLOFEN. [Suspect]
     Active Substance: BACLOFEN
     Route: 048
  5. LIORESAL [Suspect]
     Active Substance: BACLOFEN
     Indication: MUSCLE SPASTICITY
     Dosage: 559 MCG/DAY
     Route: 037
     Dates: end: 20150930
  6. BACLOFEN. [Suspect]
     Active Substance: BACLOFEN
     Dosage: 780 ?G, \DAY
     Dates: start: 20180326

REACTIONS (8)
  - Therapy non-responder [Not Recovered/Not Resolved]
  - Muscle spasticity [Unknown]
  - Drug screen negative [Unknown]
  - Astrocytoma [Unknown]
  - Lethargy [Unknown]
  - Hypotonia [Recovered/Resolved]
  - Overdose [Recovered/Resolved]
  - Somnolence [Unknown]

NARRATIVE: CASE EVENT DATE: 20150930
